FAERS Safety Report 25148586 (Version 2)
Quarter: 2025Q3

REPORT INFORMATION
  Report Type: Spontaneous
  Country: US (occurrence: US)
  Receive Date: 20250402
  Receipt Date: 20250911
  Transmission Date: 20251021
  Serious: Yes (Other)
  Sender: COOPERSURGICAL
  Company Number: US-COOPERSURGICAL, INC.-2025CPS002304

PATIENT
  Age: 38 Year
  Sex: Female
  Weight: 82.086 kg

DRUGS (1)
  1. PARAGARD T 380A [Suspect]
     Active Substance: COPPER
     Indication: Contraception
     Route: 015
     Dates: start: 20130601

REACTIONS (24)
  - Reproductive complication associated with device [Not Recovered/Not Resolved]
  - Surgery [Recovered/Resolved]
  - Ovarian cyst [Recovered/Resolved]
  - Device breakage [Recovered/Resolved]
  - Foreign body in reproductive tract [Recovered/Resolved]
  - Complication of device removal [Recovered/Resolved]
  - Embedded device [Recovered/Resolved]
  - Pelvic inflammatory disease [Unknown]
  - Malaise [Unknown]
  - Major depression [Unknown]
  - Sexual dysfunction [Not Recovered/Not Resolved]
  - Herpes simplex [Unknown]
  - Emotional distress [Not Recovered/Not Resolved]
  - Abdominal pain [Not Recovered/Not Resolved]
  - Pelvic pain [Not Recovered/Not Resolved]
  - Menstrual disorder [Not Recovered/Not Resolved]
  - Muscle spasms [Not Recovered/Not Resolved]
  - Device dislocation [Recovered/Resolved]
  - Bacterial vaginosis [Unknown]
  - Vulvovaginal candidiasis [Unknown]
  - Abnormal uterine bleeding [Unknown]
  - Vaginal haemorrhage [Unknown]
  - Amenorrhoea [Unknown]
  - Dysmenorrhoea [None]

NARRATIVE: CASE EVENT DATE: 20151201
